FAERS Safety Report 19979943 (Version 1)
Quarter: 2021Q4

REPORT INFORMATION
  Report Type: Spontaneous
  Country: US (occurrence: US)
  Receive Date: 20211021
  Receipt Date: 20211021
  Transmission Date: 20220303
  Serious: Yes (Other)
  Sender: FDA-Public Use
  Company Number: US-MYLANLABS-2021M1073814

PATIENT
  Age: 58 Year
  Sex: Female

DRUGS (10)
  1. MERCAPTOPURINE [Suspect]
     Active Substance: MERCAPTOPURINE
     Indication: Crohn^s disease
     Dosage: UNK
     Route: 065
  2. ALLOPURINOL [Suspect]
     Active Substance: ALLOPURINOL
     Indication: Crohn^s disease
     Dosage: UNK
     Route: 065
  3. LIDOCAINE [Suspect]
     Active Substance: LIDOCAINE
     Indication: Crohn^s disease
     Dosage: UNK
     Route: 065
  4. PREDNISONE [Suspect]
     Active Substance: PREDNISONE
     Indication: Crohn^s disease
     Dosage: UNK
     Route: 048
  5. PREDNISONE [Suspect]
     Active Substance: PREDNISONE
     Dosage: TAPERING
     Route: 048
  6. SULFASALAZINE [Suspect]
     Active Substance: SULFASALAZINE
     Indication: Crohn^s disease
     Dosage: UNK
     Route: 065
  7. IMMUNE GLOBULIN NOS [Suspect]
     Active Substance: IMMUNE GLOBULIN NOS
     Indication: Crohn^s disease
     Dosage: UNK
     Route: 042
  8. DAPSONE [Concomitant]
     Active Substance: DAPSONE
     Indication: Linear IgA disease
     Dosage: 25 MILLIGRAM, BID
     Route: 065
  9. DEXAMETHASONE [Concomitant]
     Active Substance: DEXAMETHASONE
     Indication: Mouth ulceration
     Dosage: UNK
     Route: 065
  10. CLOBETASOL [Concomitant]
     Active Substance: CLOBETASOL
     Indication: Vulval disorder
     Dosage: UNK
     Route: 061

REACTIONS (5)
  - Drug ineffective [Unknown]
  - Rebound effect [Unknown]
  - Condition aggravated [Unknown]
  - Crohn^s disease [Unknown]
  - Off label use [Unknown]
